FAERS Safety Report 5850792-X (Version None)
Quarter: 2008Q3

REPORT INFORMATION
  Report Type: 
  Country: None (occurrence: None)
  Receive Date: 20080820
  Receipt Date: 20080818
  Transmission Date: 20090109
  Serious: Yes (Hospitalization)
  Sender: FDA-Public Use
  Company Number: PHHO2004US11615

PATIENT
  Sex: Male
  Weight: 90.9 kg

DRUGS (9)
  1. CIBADREX T29368+ [Suspect]
     Indication: HYPERTENSION
     Dosage: LEVEL 1
     Route: 048
     Dates: start: 20030717, end: 20030818
  2. CIBADREX T29368+ [Suspect]
     Dosage: UNK, LEVEL 2
     Route: 048
     Dates: start: 20030819, end: 20040511
  3. AVANDIA [Concomitant]
     Dosage: 4 MG, BID
  4. GLYBURIDE [Concomitant]
  5. GLUCOPHAGE [Concomitant]
     Dosage: 500 MG, BID
  6. FLOMAX [Concomitant]
     Dosage: .4 MG, BID
  7. NEXIUM [Concomitant]
     Dosage: 40 MG, QD
  8. LIPITOR [Concomitant]
     Dosage: 20 MG, QD
  9. COREG [Concomitant]
     Indication: DIZZINESS
     Dosage: 25 MG, BID
     Dates: start: 20030829

REACTIONS (19)
  - BACK PAIN [None]
  - CONFUSIONAL STATE [None]
  - CONTUSION [None]
  - DEHYDRATION [None]
  - DIABETIC NEUROPATHY [None]
  - DIZZINESS [None]
  - EXCORIATION [None]
  - FALL [None]
  - HEADACHE [None]
  - HYPOGLYCAEMIA [None]
  - NAUSEA [None]
  - NECK PAIN [None]
  - ORTHOSTATIC HYPOTENSION [None]
  - PAIN IN EXTREMITY [None]
  - SINUS TACHYCARDIA [None]
  - SINUSITIS [None]
  - SUPRAVENTRICULAR EXTRASYSTOLES [None]
  - SYNCOPE [None]
  - VENTRICULAR EXTRASYSTOLES [None]
